FAERS Safety Report 21928894 (Version 1)
Quarter: 2023Q1

REPORT INFORMATION
  Report Type: Other
  Country: None (occurrence: BR)
  Receive Date: 20230131
  Receipt Date: 20230131
  Transmission Date: 20230418
  Serious: Yes (Hospitalization, Other)
  Sender: FDA-Public Use
  Company Number: BR-Appco Pharma LLC-2137276

PATIENT
  Age: 62 Year
  Sex: Male

DRUGS (5)
  1. HYDROXYCHLOROQUINE SULFATE [Suspect]
     Active Substance: HYDROXYCHLOROQUINE SULFATE
     Indication: COVID-19
     Route: 065
  2. AZITHROMYCIN ANHYDROUS [Suspect]
     Active Substance: AZITHROMYCIN ANHYDROUS
     Route: 065
  3. NITAZOXANIDE [Suspect]
     Active Substance: NITAZOXANIDE
     Route: 065
  4. TOCILIZUMAB [Concomitant]
     Active Substance: TOCILIZUMAB
     Route: 065
  5. CEFTAROLINE [Concomitant]
     Active Substance: CEFTAROLINE
     Route: 042

REACTIONS (4)
  - Condition aggravated [Unknown]
  - Product use in unapproved indication [Unknown]
  - Hypotension [Unknown]
  - Diarrhoea [Unknown]
